FAERS Safety Report 5637884-5 (Version None)
Quarter: 2008Q1

REPORT INFORMATION
  Report Type: 
  Country: None (occurrence: None)
  Receive Date: 20080221
  Receipt Date: 20080221
  Transmission Date: 20080703
  Serious: Yes (Hospitalization)
  Sender: FDA-Public Use
  Company Number: None

PATIENT
  Age: 66 Year
  Sex: Male
  Weight: 98 kg

DRUGS (1)
  1. ALLOPURINOL [Suspect]
     Dosage: 100MG EVERY DAY PO
     Route: 048
     Dates: start: 20070517, end: 20080114

REACTIONS (2)
  - RASH [None]
  - RASH MORBILLIFORM [None]
